FAERS Safety Report 6684349-8 (Version None)
Quarter: 2010Q2

REPORT INFORMATION
  Report Type: 
  Country: None (occurrence: None)
  Receive Date: 20100416
  Receipt Date: 20100414
  Transmission Date: 20101027
  Serious: No
  Sender: FDA-Public Use
  Company Number: FR-ASTRAZENECA-2010SE09720

PATIENT
  Age: 37 Year
  Sex: Male

DRUGS (2)
  1. CANDESARTAN CILEXETIL/HYDROCHLOROTHIAZIDE (ATACAND HCT) [Suspect]
     Indication: HYPERTENSION
     Dosage: 8+12.5 MG DAILY
     Route: 048
     Dates: start: 20100201, end: 20100303
  2. DAFALGAN [Concomitant]
     Indication: OSTEOARTHRITIS

REACTIONS (5)
  - ARTHRALGIA [None]
  - HYPOTENSION [None]
  - MYALGIA [None]
  - PYREXIA [None]
  - URTICARIA [None]
